FAERS Safety Report 21440740 (Version 1)
Quarter: 2022Q4

REPORT INFORMATION
  Report Type: Report from Study
  Country: HU (occurrence: HU)
  Receive Date: 20221011
  Receipt Date: 20221011
  Transmission Date: 20230113
  Serious: Yes (Life-Threatening)
  Sender: FDA-Public Use
  Company Number: HU-ELI_LILLY_AND_COMPANY-HU202210003995

PATIENT
  Sex: Female
  Weight: 61.224 kg

DRUGS (2)
  1. DULOXETINE HYDROCHLORIDE [Suspect]
     Active Substance: DULOXETINE HYDROCHLORIDE
     Indication: Depression
     Dosage: UNK UNK, UNKNOWN
     Route: 065
  2. DULOXETINE HYDROCHLORIDE [Suspect]
     Active Substance: DULOXETINE HYDROCHLORIDE
     Indication: Pain

REACTIONS (8)
  - Suicidal ideation [Unknown]
  - Irritability [Unknown]
  - Thinking abnormal [Unknown]
  - Abnormal behaviour [Unknown]
  - Agitation [Unknown]
  - Crying [Unknown]
  - Therapeutic product effect decreased [Unknown]
  - Product tampering [Unknown]
